FAERS Safety Report 10044924 (Version 1)
Quarter: 2014Q1

REPORT INFORMATION
  Report Type: Spontaneous
  Country: FR (occurrence: FR)
  Receive Date: 20140328
  Receipt Date: 20140328
  Transmission Date: 20141002
  Serious: Yes (Hospitalization)
  Sender: FDA-Public Use
  Company Number: FR-GLAXOSMITHKLINE-B0978016A

PATIENT
  Sex: Female

DRUGS (5)
  1. REQUIP [Suspect]
     Indication: PARKINSONISM
     Dosage: 8UNIT PER DAY
     Route: 048
     Dates: start: 20120515, end: 20140210
  2. AZILECT [Suspect]
     Indication: PARKINSONISM
     Route: 048
     Dates: start: 20120515, end: 20140210
  3. STALEVO [Suspect]
     Indication: PARKINSONISM
     Dosage: 2UNIT PER DAY
     Route: 048
     Dates: start: 20120515, end: 20140210
  4. DEPAKOTE [Concomitant]
     Route: 065
  5. ABILIFY [Concomitant]
     Route: 065

REACTIONS (3)
  - Mania [Recovered/Resolved]
  - Confusional state [Recovered/Resolved with Sequelae]
  - Incoherent [Recovered/Resolved with Sequelae]
